FAERS Safety Report 10873573 (Version 1)
Quarter: 2015Q1

REPORT INFORMATION
  Report Type: Report from Study
  Country: US (occurrence: US)
  Receive Date: 20150227
  Receipt Date: 20150227
  Transmission Date: 20150721
  Serious: Yes (Other)
  Sender: FDA-Public Use
  Company Number: US-SANOFI-AVENTIS-2013SA056604

PATIENT
  Age: 65 Year
  Sex: Female

DRUGS (2)
  1. AUBAGIO [Suspect]
     Active Substance: TERIFLUNOMIDE
     Indication: MULTIPLE SCLEROSIS
     Route: 048
     Dates: start: 20130501
  2. TEGRETOL [Concomitant]
     Active Substance: CARBAMAZEPINE
     Dates: start: 1983, end: 2013

REACTIONS (7)
  - Gastrointestinal disorder [Unknown]
  - Alopecia [Not Recovered/Not Resolved]
  - Erythema [Not Recovered/Not Resolved]
  - Hair texture abnormal [Not Recovered/Not Resolved]
  - Abasia [Unknown]
  - Loss of control of legs [Unknown]
  - Urine output increased [Unknown]

NARRATIVE: CASE EVENT DATE: 201305
